FAERS Safety Report 7182726-2 (Version None)
Quarter: 2010Q4

REPORT INFORMATION
  Report Type: 
  Country: None (occurrence: None)
  Receive Date: 20101221
  Receipt Date: 20100615
  Transmission Date: 20110411
  Serious: Yes (Other)
  Sender: FDA-Public Use
  Company Number: US-AMGEN-QUU412767

PATIENT

DRUGS (10)
  1. ENBREL [Suspect]
     Indication: PSORIATIC ARTHROPATHY
     Dosage: 50 MG, 2 TIMES/WK
     Route: 058
     Dates: start: 20050103, end: 20090807
  2. XOPENEX [Concomitant]
     Dosage: UNK UNK, UNK
  3. HALOBETASOL PROPRIONATE [Concomitant]
     Dosage: UNK UNK, UNK
  4. FLUOCINONIDE [Concomitant]
     Dosage: UNK UNK, UNK
  5. VERAPAMIL [Concomitant]
     Dosage: UNK UNK, UNK
  6. NAPROXEN SODIUM [Concomitant]
     Dosage: UNK UNK, UNK
  7. OMEPRAZOLE [Concomitant]
     Dosage: UNK UNK, UNK
  8. DULOXETIME HYDROCHLORIDE [Concomitant]
     Dosage: UNK UNK, UNK
  9. METFORMIN HCL [Concomitant]
     Dosage: UNK UNK, UNK
  10. CLOBETASOL [Concomitant]
     Dosage: UNK UNK, UNK

REACTIONS (2)
  - PROSTATE CANCER [None]
  - PSORIASIS [None]
